FAERS Safety Report 7173268-9 (Version None)
Quarter: 2010Q4

REPORT INFORMATION
  Report Type: 
  Country: None (occurrence: None)
  Receive Date: 20101203
  Receipt Date: 20101117
  Transmission Date: 20110411
  Serious: Yes (Death, Life-Threatening, Hospitalization)
  Sender: FDA-Public Use
  Company Number: 2010004212

PATIENT
  Age: 75 Year
  Sex: Male
  Weight: 53 kg

DRUGS (7)
  1. ERLOTINIB/PLACEBO (ERLOTINIB) (TABLET) (ERLOTINIB) [Suspect]
     Indication: HEPATIC NEOPLASM MALIGNANT
     Dosage: 150 MG, QD, ORAL
     Route: 048
     Dates: start: 20100819, end: 20100923
  2. SORAFENIB [Suspect]
     Indication: HEPATIC NEOPLASM MALIGNANT
     Dosage: 400 MG, BID, ORAL
     Route: 048
     Dates: start: 20100819, end: 20100923
  3. XATRAL (ALFUZOSIN) [Concomitant]
  4. TAREG (VALSARTAN) [Concomitant]
  5. ZOCOR [Concomitant]
  6. FENOFIBRATE [Concomitant]
  7. LOPERAMIDE [Concomitant]

REACTIONS (4)
  - DYSURIA [None]
  - GASTRIC PERFORATION [None]
  - GENERAL PHYSICAL HEALTH DETERIORATION [None]
  - RENAL FAILURE [None]
